FAERS Safety Report 5317905-X (Version None)
Quarter: 2007Q2

REPORT INFORMATION
  Report Type: 
  Country: None (occurrence: None)
  Receive Date: 20070507
  Receipt Date: 20070424
  Transmission Date: 20071010
  Serious: Yes (Hospitalization)
  Sender: FDA-Public Use
  Company Number: B0461088C

PATIENT
  Age: 41 Year
  Sex: Female
  Weight: 77 kg

DRUGS (2)
  1. TYKERB [Suspect]
     Dosage: 1250MG PER DAY
     Route: 048
     Dates: start: 20070227, end: 20070326
  2. XELODA [Suspect]
     Dosage: 3.6G PER DAY
     Route: 048
     Dates: start: 20070227, end: 20070304

REACTIONS (1)
  - CONVULSION [None]
